FAERS Safety Report 11168334 (Version 1)
Quarter: 2015Q2

REPORT INFORMATION
  Report Type: Spontaneous
  Country: US (occurrence: US)
  Receive Date: 20150605
  Receipt Date: 20150605
  Transmission Date: 20150821
  Serious: No
  Sender: FDA-Public Use
  Company Number: US-009507513-1505USA011277

PATIENT
  Age: 17 Year
  Sex: Female
  Weight: 47.62 kg

DRUGS (1)
  1. NEXPLANON [Suspect]
     Active Substance: ETONOGESTREL
     Indication: CONTRACEPTION
     Dosage: UNK
     Route: 059
     Dates: start: 20150512, end: 20150521

REACTIONS (4)
  - Implant site bruising [Unknown]
  - Implant site pain [Unknown]
  - Discomfort [Unknown]
  - Device expulsion [Unknown]

NARRATIVE: CASE EVENT DATE: 201505
